FAERS Safety Report 10289516 (Version 3)
Quarter: 2014Q3

REPORT INFORMATION
  Report Type: Spontaneous
  Country: US (occurrence: None)
  Receive Date: 20140707
  Receipt Date: 20140822
  Transmission Date: 20150326
  Serious: Yes (Hospitalization)
  Sender: FDA-Public Use
  Company Number: UNT-2014-002965

PATIENT
  Age: 52 Year
  Sex: Female

DRUGS (4)
  1. REMODULIN [Suspect]
     Active Substance: TREPROSTINIL
     Indication: PULMONARY ARTERIAL HYPERTENSION
     Route: 041
     Dates: start: 20091125
  2. TRACLEER /01587701/ (BOSENTAN) [Concomitant]
  3. WARFARIN (WARFARIN) [Concomitant]
     Active Substance: WARFARIN
  4. REMODULIN [Suspect]
     Active Substance: TREPROSTINIL
     Indication: HEART DISEASE CONGENITAL
     Route: 041
     Dates: start: 20091125

REACTIONS (4)
  - Vomiting [None]
  - Accidental overdose [None]
  - Adverse drug reaction [None]
  - Nausea [None]

NARRATIVE: CASE EVENT DATE: 20140616
